FAERS Safety Report 5344399-0 (Version None)
Quarter: 2007Q2

REPORT INFORMATION
  Report Type: 
  Country: None (occurrence: None)
  Receive Date: 20070604
  Receipt Date: 20070531
  Transmission Date: 20071010
  Serious: Yes (Disabling)
  Sender: FDA-Public Use
  Company Number: MX-ABBOTT-07P-107-0370145-00

PATIENT
  Sex: Male

DRUGS (3)
  1. TARKA [Suspect]
     Indication: HYPERTENSION
     Route: 048
     Dates: start: 20060301, end: 20070529
  2. METFORMIN HYDROCHLORIDE [Concomitant]
     Indication: DIABETES MELLITUS
  3. SUGUAN [Concomitant]
     Indication: DIABETES MELLITUS

REACTIONS (5)
  - FALL [None]
  - FATIGUE [None]
  - HAND FRACTURE [None]
  - UNEVALUABLE EVENT [None]
  - VERTIGO [None]
